FAERS Safety Report 11540790 (Version 1)
Quarter: 2015Q3

REPORT INFORMATION
  Report Type: Spontaneous
  Country: US (occurrence: US)
  Receive Date: 20150923
  Receipt Date: 20150923
  Transmission Date: 20151125
  Serious: Yes (Other)
  Sender: FDA-Public Use
  Company Number: US-SUN PHARMACEUTICAL INDUSTRIES LTD-2015US-103600

PATIENT
  Sex: Female

DRUGS (1)
  1. VALACYCLOVIR [Suspect]
     Active Substance: VALACYCLOVIR HYDROCHLORIDE
     Indication: PRODUCT USED FOR UNKNOWN INDICATION
     Dosage: 1 G, BID
     Route: 048

REACTIONS (7)
  - Wrong technique in product usage process [Unknown]
  - Product taste abnormal [Unknown]
  - Choking [Unknown]
  - Dyspnoea [Unknown]
  - Product physical issue [Unknown]
  - Dysphagia [Unknown]
  - Foreign body [Unknown]
